FAERS Safety Report 8429191-2 (Version None)
Quarter: 2012Q2

REPORT INFORMATION
  Report Type: 
  Country: None (occurrence: None)
  Receive Date: 20120612
  Receipt Date: 20120604
  Transmission Date: 20120825
  Serious: Yes (Other)
  Sender: FDA-Public Use
  Company Number: PHHY2012JP039905

PATIENT
  Age: 86 Year
  Sex: Male

DRUGS (7)
  1. ALLOPURINOL [Suspect]
     Dosage: 100 MG, DAILY
     Route: 048
  2. DIOVAN [Suspect]
     Indication: HYPERTENSION
     Dosage: 40 MG, DAILY
     Route: 048
  3. GASMOTIN [Concomitant]
     Dosage: 5 MG, THREE TABLETS DAILY
     Route: 048
  4. MUCOSTA [Concomitant]
     Dosage: 3 DF, DAILY
     Route: 048
  5. DEPAS [Concomitant]
     Dosage: 1 DF, DAILY
  6. ASPIRIN [Concomitant]
     Dosage: 1 DF, DAILY
     Route: 048
  7. THEOPHYLLINE [Suspect]
     Dosage: 400 MG, DAILY
     Route: 048

REACTIONS (2)
  - RHABDOMYOLYSIS [None]
  - PYREXIA [None]
